FAERS Safety Report 22118299 (Version 2)
Quarter: 2023Q2

REPORT INFORMATION
  Report Type: Report from Study
  Country: CA (occurrence: CA)
  Receive Date: 20230321
  Receipt Date: 20230412
  Transmission Date: 20230722
  Serious: Yes (Other)
  Sender: FDA-Public Use
  Company Number: CA-JNJFOC-20220140861

PATIENT
  Age: 33 Year
  Sex: Female
  Weight: 94 kg

DRUGS (2)
  1. REMICADE [Suspect]
     Active Substance: INFLIXIMAB
     Indication: Hidradenitis
     Dosage: EXPIRY DATE 30-SEP-2024, 31-JUL-2025?V4: THERAPY START DATE ALSO REPORTED AS 22-JUL-2021
     Route: 041
     Dates: start: 20200702, end: 20230316
  2. REMICADE [Suspect]
     Active Substance: INFLIXIMAB
     Route: 041
     Dates: start: 20200702, end: 20230316

REACTIONS (7)
  - Infected cyst [Recovering/Resolving]
  - Postoperative wound infection [Recovered/Resolved]
  - Surgery [Recovering/Resolving]
  - Abdominal operation [Unknown]
  - Hidradenitis [Recovering/Resolving]
  - Streptococcal infection [Unknown]
  - Drug ineffective [Unknown]

NARRATIVE: CASE EVENT DATE: 20211231
